FAERS Safety Report 14206650 (Version 1)
Quarter: 2017Q4

REPORT INFORMATION
  Report Type: Spontaneous
  Country: JP (occurrence: JP)
  Receive Date: 20171120
  Receipt Date: 20171120
  Transmission Date: 20180321
  Serious: Yes (Hospitalization)
  Sender: FDA-Public Use
  Company Number: JP-IMPAX LABORATORIES, INC-2017-IPXL-03184

PATIENT
  Age: 72 Year
  Sex: Female

DRUGS (15)
  1. CARBIDOPA-LEVODOPA ER [Suspect]
     Active Substance: CARBIDOPA\LEVODOPA
     Dosage: 600 MG, DAILY (IN 3 DIVIDED DOSES PER DAY)
     Route: 048
     Dates: start: 2016
  2. SELEGILINE [Suspect]
     Active Substance: SELEGILINE
     Indication: PRODUCT USED FOR UNKNOWN INDICATION
     Dosage: 10 MG, DAILY
     Route: 065
     Dates: start: 201406
  3. CARBIDOPA-LEVODOPA ER [Suspect]
     Active Substance: CARBIDOPA\LEVODOPA
     Indication: PARKINSON^S DISEASE
     Dosage: 200 MG, DAILY
     Route: 048
     Dates: start: 200802
  4. CARBIDOPA-LEVODOPA ER [Suspect]
     Active Substance: CARBIDOPA\LEVODOPA
     Dosage: 500 MG, DAILY
     Route: 042
  5. CARBIDOPA-LEVODOPA ER [Suspect]
     Active Substance: CARBIDOPA\LEVODOPA
     Dosage: 22/5.5 MG/H, (INTRAJEJUNAL INFUSION)
     Route: 050
  6. ROTIGOTINE [Suspect]
     Active Substance: ROTIGOTINE
     Indication: PRODUCT USED FOR UNKNOWN INDICATION
     Dosage: 9 MG, DAILY
     Route: 065
     Dates: start: 2016
  7. CARBIDOPA-LEVODOPA ER [Suspect]
     Active Substance: CARBIDOPA\LEVODOPA
     Dosage: 400 MG, DAILY
     Route: 048
     Dates: start: 201505
  8. CARBIDOPA-LEVODOPA ER [Suspect]
     Active Substance: CARBIDOPA\LEVODOPA
     Dosage: 28/7 MG/H INFUSION, UNK
     Route: 050
  9. CARBIDOPA-LEVODOPA ER [Suspect]
     Active Substance: CARBIDOPA\LEVODOPA
     Dosage: 300 MG, DAILY
     Route: 048
     Dates: start: 201406
  10. PRAMIPEXOLE. [Suspect]
     Active Substance: PRAMIPEXOLE
     Indication: PARKINSON^S DISEASE
     Dosage: 0.5 MG, DAILY
     Route: 065
     Dates: start: 200802
  11. PRAMIPEXOLE. [Suspect]
     Active Substance: PRAMIPEXOLE
     Dosage: 1 MG, DAILY
     Route: 065
     Dates: start: 200908
  12. ZONISAMIDE. [Suspect]
     Active Substance: ZONISAMIDE
     Indication: PRODUCT USED FOR UNKNOWN INDICATION
     Dosage: 50 MG, DAILY
     Route: 065
     Dates: start: 201406
  13. ZONISAMIDE. [Suspect]
     Active Substance: ZONISAMIDE
     Dosage: 25 MG, DAILY
     Route: 065
     Dates: start: 2016
  14. ZONISAMIDE. [Suspect]
     Active Substance: ZONISAMIDE
     Dosage: 50 MG, DAILY
     Route: 065
     Dates: start: 2016
  15. CARBIDOPA-LEVODOPA ER [Suspect]
     Active Substance: CARBIDOPA\LEVODOPA
     Dosage: 22/5.5 MG/H, (VIA A NASODUODENAL TUBE)
     Route: 050
     Dates: start: 201612

REACTIONS (7)
  - Posture abnormal [Recovering/Resolving]
  - Gait disturbance [Recovering/Resolving]
  - Akinesia [Recovering/Resolving]
  - Muscle spasms [Recovered/Resolved]
  - Hallucination, visual [Recovered/Resolved]
  - Therapeutic response shortened [Unknown]
  - Dyskinesia [Recovering/Resolving]

NARRATIVE: CASE EVENT DATE: 201505
